FAERS Safety Report 12387831 (Version 1)
Quarter: 2016Q2

REPORT INFORMATION
  Report Type: Spontaneous
  Country: MX (occurrence: MX)
  Receive Date: 20160520
  Receipt Date: 20160520
  Transmission Date: 20160815
  Serious: Yes (Death, Other)
  Sender: FDA-Public Use
  Company Number: MX-CIPLA LTD.-2016MX04874

PATIENT

DRUGS (1)
  1. EPIRUBICIN [Suspect]
     Active Substance: EPIRUBICIN
     Indication: BURKITT^S LYMPHOMA STAGE IV
     Dosage: UNK
     Route: 065

REACTIONS (2)
  - Congestive cardiomyopathy [Fatal]
  - Infection [Unknown]
